FAERS Safety Report 7108203-2 (Version None)
Quarter: 2010Q4

REPORT INFORMATION
  Report Type: 
  Country: None (occurrence: None)
  Receive Date: 20101117
  Receipt Date: 20101103
  Transmission Date: 20110411
  Serious: Yes (Hospitalization, Disabling)
  Sender: FDA-Public Use
  Company Number: PHHY2010CL74455

PATIENT
  Age: 63 Year
  Sex: Female

DRUGS (1)
  1. EXFORGE [Suspect]
     Dosage: 160/5 MG, 2 TABLETS PER DAY

REACTIONS (2)
  - ANAL NEOPLASM [None]
  - SURGERY [None]
